FAERS Safety Report 8480603 (Version 2)
Quarter: 2014Q1

REPORT INFORMATION
  Report Type: Spontaneous
  Country: US (occurrence: US)
  Receive Date: 20120328
  Receipt Date: 20140226
  Transmission Date: 20141002
  Serious: Yes (Hospitalization)
  Sender: FDA-Public Use
  Company Number: US-GLAXOSMITHKLINE-A0906714A

PATIENT
  Age: 66 Year
  Sex: Female

DRUGS (1)
  1. AVANDIA [Suspect]
     Indication: DIABETES MELLITUS
     Dosage: 4MG PER DAY
     Route: 048
     Dates: start: 20021004, end: 2007

REACTIONS (4)
  - Coronary artery bypass [Not Recovered/Not Resolved]
  - Osteomyelitis [Unknown]
  - Myocardial infarction [Unknown]
  - Coronary artery disease [Unknown]
